FAERS Safety Report 26028489 (Version 1)
Quarter: 2025Q4

REPORT INFORMATION
  Report Type: Report from Study
  Country: DO (occurrence: DO)
  Receive Date: 20251111
  Receipt Date: 20251111
  Transmission Date: 20260117
  Serious: Yes (Other)
  Sender: ELI LILLY AND COMPANY
  Company Number: DO-Merck Healthcare KGaA-2025055874

PATIENT
  Age: 56 Year
  Sex: Male

DRUGS (1)
  1. CETUXIMAB [Suspect]
     Active Substance: CETUXIMAB
     Indication: Head and neck cancer
     Dosage: 500 MG, 2/M
     Route: 042
     Dates: start: 20250429

REACTIONS (4)
  - Renal disorder [Not Recovered/Not Resolved]
  - Hepatic mass [Not Recovered/Not Resolved]
  - Renal mass [Not Recovered/Not Resolved]
  - Pulmonary mass [Not Recovered/Not Resolved]
